FAERS Safety Report 6980402-X (Version None)
Quarter: 2010Q3

REPORT INFORMATION
  Report Type: 
  Country: None (occurrence: None)
  Receive Date: 20100908
  Receipt Date: 20100830
  Transmission Date: 20110219
  Serious: Yes (Hospitalization)
  Sender: FDA-Public Use
  Company Number: 016784

PATIENT
  Sex: Female
  Weight: 83 kg

DRUGS (8)
  1. CERTOLIZUMAB PEGOL (CERTOLIZUMAB PEGOL) [Suspect]
     Indication: RHEUMATOID ARTHRITIS
     Dosage: SEE IMAGE
     Route: 058
     Dates: start: 20060518, end: 20060614
  2. CERTOLIZUMAB PEGOL (CERTOLIZUMAB PEGOL) [Suspect]
     Indication: RHEUMATOID ARTHRITIS
     Dosage: SEE IMAGE
     Route: 058
     Dates: start: 20060713, end: 20071003
  3. CERTOLIZUMAB PEGOL (CERTOLIZUMAB PEGOL) [Suspect]
     Indication: RHEUMATOID ARTHRITIS
     Dosage: SEE IMAGE
     Route: 058
     Dates: start: 20071212, end: 20100826
  4. MELOXICAM [Concomitant]
  5. METHOTREXATE [Concomitant]
  6. FOLIC ACID [Concomitant]
  7. CALCIGRAN [Concomitant]
  8. IBANDRONIC ACID [Concomitant]

REACTIONS (22)
  - ASCITES [None]
  - BACTERIAL TEST POSITIVE [None]
  - CARBOHYDRATE ANTIGEN 125 INCREASED [None]
  - DERMATITIS [None]
  - EPISTAXIS [None]
  - FOOT DEFORMITY [None]
  - HAEMATOCRIT DECREASED [None]
  - HAEMOGLOBIN DECREASED [None]
  - HEPATIC CIRRHOSIS [None]
  - HYPERTENSION [None]
  - NODULE ON EXTREMITY [None]
  - OSTEOARTHRITIS [None]
  - OSTEOPOROSIS [None]
  - PLATELET COUNT DECREASED [None]
  - RHEUMATOID ARTHRITIS [None]
  - SEBORRHOEIC KERATOSIS [None]
  - SINUSITIS [None]
  - UPPER RESPIRATORY TRACT INFECTION [None]
  - URINE ANALYSIS ABNORMAL [None]
  - VARICOSE VEIN [None]
  - VENOUS INSUFFICIENCY [None]
  - WHITE BLOOD CELLS URINE POSITIVE [None]
